FAERS Safety Report 23624520 (Version 1)
Quarter: 2024Q1

REPORT INFORMATION
  Report Type: Spontaneous
  Country: AU (occurrence: AU)
  Receive Date: 20240313
  Receipt Date: 20240313
  Transmission Date: 20240410
  Serious: Yes (Death, Other)
  Sender: FDA-Public Use
  Company Number: AU-JNJFOC-20220143605

PATIENT
  Age: 77 Year
  Sex: Male

DRUGS (2)
  1. IMBRUVICA [Suspect]
     Active Substance: IBRUTINIB
     Indication: Chronic lymphocytic leukaemia
     Route: 048
     Dates: start: 20141024, end: 20150115
  2. IMBRUVICA [Suspect]
     Active Substance: IBRUTINIB
     Indication: Chronic lymphocytic leukaemia
     Route: 048
     Dates: start: 201502

REACTIONS (14)
  - Dysphagia [Fatal]
  - Pneumonia aspiration [Fatal]
  - Progressive multifocal leukoencephalopathy [Fatal]
  - Lymphocytosis [Unknown]
  - Thrombocytopenia [Unknown]
  - Anaemia [Unknown]
  - Diarrhoea [Unknown]
  - Mouth ulceration [Unknown]
  - Nausea [Unknown]
  - Intention tremor [Fatal]
  - Ataxia [Fatal]
  - JC virus infection [Fatal]
  - Dysarthria [Fatal]
  - Speech disorder [Fatal]

NARRATIVE: CASE EVENT DATE: 20180615
